FAERS Safety Report 4678951-2 (Version None)
Quarter: 2005Q2

REPORT INFORMATION
  Report Type: 
  Country: None (occurrence: None)
  Receive Date: 20050531
  Receipt Date: 20050516
  Transmission Date: 20051028
  Serious: Yes (Other)
  Sender: FDA-Public Use
  Company Number: 2005042338

PATIENT
  Age: 76 Year
  Sex: Female
  Weight: 77.1115 kg

DRUGS (11)
  1. DETROL LA [Suspect]
     Indication: HYPERTONIC BLADDER
     Dosage: 2 MG (2 MG, 1 IN 1 D), ORAL
     Route: 048
     Dates: start: 20050306
  2. AMARYL [Concomitant]
  3. ATENOLOL [Concomitant]
  4. TRICOR [Concomitant]
  5. TYLENOL [Concomitant]
  6. SYNTHROID [Concomitant]
  7. OPHTHALMOLOGICALS (OPHTHALMOLOGICALS) [Concomitant]
  8. ZOCOR [Concomitant]
  9. LEVOXYL (LEVOTHYROXIONE SODIUM) [Concomitant]
  10. LOTREL [Concomitant]
  11. PREVACID [Concomitant]

REACTIONS (5)
  - CONDITION AGGRAVATED [None]
  - CONFUSIONAL STATE [None]
  - DEPRESSED LEVEL OF CONSCIOUSNESS [None]
  - HEARING IMPAIRED [None]
  - SPEECH DISORDER [None]
